FAERS Safety Report 11189384 (Version 1)
Quarter: 2015Q2

REPORT INFORMATION
  Report Type: Spontaneous
  Country: US (occurrence: US)
  Receive Date: 20150615
  Receipt Date: 20150615
  Transmission Date: 20150821
  Serious: No
  Sender: FDA-Public Use
  Company Number: US-SHIRE-US201505817

PATIENT
  Sex: Female

DRUGS (1)
  1. CINRYZE [Suspect]
     Active Substance: HUMAN C1-ESTERASE INHIBITOR
     Indication: PRODUCT USED FOR UNKNOWN INDICATION
     Dosage: 2000 UNITS, UNKNOWN (ASSUMES EVERY 3-4 DAYS)
     Route: 042

REACTIONS (3)
  - No adverse event [Unknown]
  - Prescribed overdose [Not Recovered/Not Resolved]
  - Treatment noncompliance [Unknown]
